FAERS Safety Report 8272674-9 (Version None)
Quarter: 2012Q2

REPORT INFORMATION
  Report Type: 
  Country: None (occurrence: None)
  Receive Date: 20120411
  Receipt Date: 20120330
  Transmission Date: 20120825
  Serious: Yes (Death, Other)
  Sender: FDA-Public Use
  Company Number: US-BAXTER-2012BAX002089

PATIENT
  Age: 32 Year
  Sex: Female

DRUGS (2)
  1. LEPIRUDIN [Suspect]
  2. HEPARIN SODIUM [Suspect]
     Route: 042

REACTIONS (3)
  - CEREBRAL VENOUS THROMBOSIS [None]
  - HEPARIN-INDUCED THROMBOCYTOPENIA [None]
  - SUBDURAL HAEMATOMA [None]
